FAERS Safety Report 11074089 (Version 1)
Quarter: 2015Q2

REPORT INFORMATION
  Report Type: Spontaneous
  Country: US (occurrence: None)
  Receive Date: 20150428
  Receipt Date: 20150428
  Transmission Date: 20150821
  Serious: Yes (Death)
  Sender: FDA-Public Use
  Company Number: None

PATIENT
  Age: 80 Year
  Sex: Male

DRUGS (3)
  1. BABY ASPIRIN [Concomitant]
     Active Substance: ASPIRIN
  2. VITAMINS [Concomitant]
     Active Substance: VITAMINS
  3. PATANASE [Suspect]
     Active Substance: OLOPATADINE HYDROCHLORIDE
     Dates: start: 20150320, end: 20150328

REACTIONS (3)
  - Myocardial infarction [None]
  - Vomiting [None]
  - Product expiration date issue [None]

NARRATIVE: CASE EVENT DATE: 20150328
